FAERS Safety Report 10228110 (Version 2)
Quarter: 2014Q2

REPORT INFORMATION
  Report Type: Report from Study
  Country: DE (occurrence: DE)
  Receive Date: 20140610
  Receipt Date: 20140618
  Transmission Date: 20141212
  Serious: Yes (Hospitalization)
  Sender: FDA-Public Use
  Company Number: DE-ROCHE-1413196

PATIENT
  Age: 76 Year
  Sex: Male
  Weight: 77 kg

DRUGS (7)
  1. VEMURAFENIB [Suspect]
     Indication: METASTATIC MALIGNANT MELANOMA
     Dosage: LAST DOSE PRIOR TO SERIOUS ADVERSE EVENT: 28/MAY/2014
     Route: 048
     Dates: start: 20130906
  2. SYMBICORT TURBUHALER [Concomitant]
     Indication: ASTHMA
     Route: 050
     Dates: start: 2008
  3. KARVEZIDE [Concomitant]
     Indication: HYPERTENSION
     Route: 048
     Dates: start: 2000
  4. THYROXIN [Concomitant]
     Indication: HYPOTHYROIDISM
     Route: 048
     Dates: start: 20131118
  5. BISOPROLOL [Concomitant]
     Indication: HYPERTENSION
     Route: 048
     Dates: start: 20131125
  6. SODIUM CHLORIDE [Concomitant]
     Indication: HYPONATRAEMIA
     Dosage: SELECT IF ONGOING=NO
     Route: 042
     Dates: start: 20140530, end: 20140602
  7. COBIMETINIB [Suspect]
     Indication: METASTATIC MALIGNANT MELANOMA
     Dosage: QD?LAST DOSE PRIOR TO SERIOUS ADVERSE EVENT: 28/MAY/2014
     Route: 048
     Dates: start: 20130906

REACTIONS (1)
  - Pneumonia [Recovering/Resolving]
